FAERS Safety Report 4285091-3 (Version None)
Quarter: 2004Q1

REPORT INFORMATION
  Report Type: 
  Country: None (occurrence: None)
  Receive Date: 20040202
  Receipt Date: 20040122
  Transmission Date: 20041129
  Serious: Yes (Hospitalization)
  Sender: FDA-Public Use
  Company Number: MK200401-0288-1

PATIENT

DRUGS (1)
  1. ANAFRANIL CAP [Suspect]

REACTIONS (2)
  - HOLT-ORAM SYNDROME [None]
  - MATERNAL DRUGS AFFECTING FOETUS [None]
